FAERS Safety Report 24372151 (Version 4)
Quarter: 2025Q2

REPORT INFORMATION
  Report Type: Spontaneous
  Country: US (occurrence: US)
  Receive Date: 20240927
  Receipt Date: 20250425
  Transmission Date: 20250717
  Serious: Yes (Life-Threatening, Hospitalization, Other)
  Sender: PFIZER
  Company Number: US-MLMSERVICE-20240918-PI195862-00147-1

PATIENT
  Age: 67 Year
  Sex: Male

DRUGS (5)
  1. PEGFILGRASTIM [Suspect]
     Active Substance: PEGFILGRASTIM
     Indication: Febrile neutropenia
     Dates: start: 20240408
  2. PEGFILGRASTIM [Suspect]
     Active Substance: PEGFILGRASTIM
     Indication: Febrile neutropenia
  3. PEGFILGRASTIM [Suspect]
     Active Substance: PEGFILGRASTIM
     Indication: Prophylaxis
  4. AZACITIDINE [Concomitant]
     Active Substance: AZACITIDINE
     Indication: Blast cell crisis
  5. VENETOCLAX [Concomitant]
     Active Substance: VENETOCLAX
     Indication: Blast cell crisis

REACTIONS (1)
  - Splenic infarction [Recovering/Resolving]

NARRATIVE: CASE EVENT DATE: 20240410
